FAERS Safety Report 21548863 (Version 8)
Quarter: 2023Q2

REPORT INFORMATION
  Report Type: Spontaneous
  Country: US (occurrence: US)
  Receive Date: 20221103
  Receipt Date: 20230406
  Transmission Date: 20230721
  Serious: No
  Sender: FDA-Public Use
  Company Number: US-PFIZER INC-PV202200095233

PATIENT
  Age: 64 Year
  Sex: Female

DRUGS (1)
  1. IBRANCE [Suspect]
     Active Substance: PALBOCICLIB
     Dosage: UNK

REACTIONS (18)
  - Fatigue [Not Recovered/Not Resolved]
  - Arthralgia [Unknown]
  - Increased appetite [Unknown]
  - Asthenia [Unknown]
  - Headache [Recovered/Resolved]
  - Nausea [Not Recovered/Not Resolved]
  - Alopecia [Unknown]
  - Poor quality sleep [Unknown]
  - Dyspepsia [Unknown]
  - Pruritus [Unknown]
  - Nasal congestion [Unknown]
  - Insomnia [Not Recovered/Not Resolved]
  - Blood pressure increased [Unknown]
  - Hot flush [Unknown]
  - Vomiting [Unknown]
  - Abdominal discomfort [Unknown]
  - Hepatic enzyme increased [Unknown]
  - Breast pain [Unknown]
